FAERS Safety Report 5489779-8 (Version None)
Quarter: 2007Q4

REPORT INFORMATION
  Report Type: 
  Country: None (occurrence: None)
  Receive Date: 20071012
  Receipt Date: 20070328
  Transmission Date: 20080405
  Serious: Yes (Other)
  Sender: FDA-Public Use
  Company Number: IMP_2802_2007

PATIENT
  Sex: Female
  Weight: 52.1637 kg

DRUGS (6)
  1. BUPROPION 300 MG (IMPAX) [Suspect]
     Indication: CHRONIC FATIGUE SYNDROME
     Dosage: 300 MG ORAL
     Route: 048
     Dates: start: 20070313, end: 20070321
  2. EVISTA [Concomitant]
  3. LEVOXYL [Concomitant]
  4. IBUPROFEN [Concomitant]
  5. CYTOMEL [Concomitant]
  6. WELLBUTRIN [Concomitant]

REACTIONS (6)
  - ABASIA [None]
  - ARTHRALGIA [None]
  - FALL [None]
  - FATIGUE [None]
  - MUSCLE SPASMS [None]
  - PHARMACEUTICAL PRODUCT COMPLAINT [None]
